FAERS Safety Report 7693138-7 (Version None)
Quarter: 2011Q3

REPORT INFORMATION
  Report Type: 
  Country: None (occurrence: None)
  Receive Date: 20110819
  Receipt Date: 20110816
  Transmission Date: 20111222
  Serious: Yes (Life-Threatening)
  Sender: FDA-Public Use
  Company Number: GB-PFIZER INC-2011189120

PATIENT
  Age: 76 Year
  Sex: Female

DRUGS (29)
  1. MORPHINE SULFATE [Concomitant]
     Dosage: 10 MG, AS NEEDED
     Dates: end: 20110706
  2. ALLOPURINOL [Concomitant]
     Indication: GOUT
     Dosage: 300 MG, 1X/DAY
     Dates: start: 20100201, end: 20110719
  3. CIPROFLOXACIN [Concomitant]
     Dosage: 500 MG
     Dates: start: 20110719, end: 20110719
  4. AMOXICILLIN AND CLAVULANATE POTASSIUM [Concomitant]
     Dosage: 625 MG, 3X/DAY
     Dates: start: 20110721, end: 20110727
  5. FUROSEMIDE [Concomitant]
     Dosage: 20 MG, 1X/DAY
     Dates: start: 20110705, end: 20110706
  6. HYOSCINE BUTYLBROMIDE [Concomitant]
     Dosage: 20 MG, AS NEEDED
     Dates: start: 20110725
  7. MIDAZOLAM [Concomitant]
     Dosage: 2 MG, AS NEEDED
     Dates: start: 20110720, end: 20110721
  8. MST CONTINUS ^NAPP^ [Concomitant]
     Dosage: 10 MG, 2X/DAY
     Dates: end: 20110706
  9. PULMICORT [Concomitant]
     Route: 055
  10. EXEMESTANE [Suspect]
     Indication: BREAST CANCER
     Dosage: 25 MG, 1X/DAY
     Route: 048
     Dates: start: 20110601, end: 20110718
  11. BRICANYL [Concomitant]
     Dosage: UNK
     Route: 055
     Dates: start: 20110719, end: 20110719
  12. LANSOPRAZOLE [Concomitant]
     Dosage: 30 MG, 1X/DAY
     Dates: start: 20110706
  13. LORAZEPAM [Concomitant]
     Dosage: 0.5 MG, AS NEEDED
  14. NYSTATIN [Concomitant]
     Dosage: 1 ML, 4X/DAY
     Dates: start: 20110706, end: 20110724
  15. AMITRIPTYLINE [Concomitant]
     Dosage: 10 MG, UNK
     Dates: end: 20110706
  16. PARACETAMOL [Concomitant]
     Dosage: 500 MG, 4X/DAY
     Dates: start: 20110707
  17. GABAPENTIN [Suspect]
     Indication: NEURALGIA
     Dosage: 300 MG, 3X/DAY
     Route: 048
     Dates: start: 20110715, end: 20110718
  18. LOPERAMIDE [Concomitant]
     Dosage: 4 MG, AS NEEDED
     Dates: start: 20110728
  19. OXYCONTIN [Concomitant]
     Dosage: 2X/DAY
     Dates: start: 20110718, end: 20110725
  20. OXYCODONE HCL [Concomitant]
     Dosage: 4X/DAY
     Dates: start: 20110725
  21. DEXAMETHASONE [Concomitant]
     Dosage: UNK
     Dates: start: 20110610, end: 20110727
  22. DIAZEPAM [Concomitant]
     Dosage: 5 MG, 3X/DAY
     Dates: end: 20110706
  23. SALBUTAMOL [Concomitant]
     Dosage: 2.5 MG, 4X/DAY
     Route: 055
     Dates: start: 20110706, end: 20110707
  24. ACETAMINOPHEN AND CODEINE PHOSPHATE [Concomitant]
     Dosage: 4X/DAY
     Dates: end: 20110712
  25. GLICLAZIDE [Concomitant]
     Dosage: 40 MG, 1X/DAY
     Dates: start: 20110708
  26. LACTULOSE [Concomitant]
     Dosage: UNK
     Dates: end: 20110724
  27. ENOXAPARIN [Concomitant]
     Dosage: 40 MG, UNK
     Dates: start: 20110721, end: 20110726
  28. LAXIDO [Concomitant]
     Dosage: AS NEEDED
     Dates: start: 20110710
  29. SENNA [Concomitant]
     Dosage: UNK
     Route: 048
     Dates: end: 20110724

REACTIONS (3)
  - NEUTROPENIA [None]
  - SEPSIS [None]
  - HEPATIC FUNCTION ABNORMAL [None]
